FAERS Safety Report 15138698 (Version 2)
Quarter: 2018Q3

REPORT INFORMATION
  Report Type: Report from Study
  Country: None (occurrence: US)
  Receive Date: 20180713
  Receipt Date: 20180918
  Transmission Date: 20181010
  Serious: Yes (Other)
  Sender: FDA-Public Use
  Company Number: US-ABBVIE-18K-163-2414790-00

PATIENT
  Age: 55 Year
  Sex: Female
  Weight: 79.45 kg

DRUGS (3)
  1. METHOTREXATE. [Concomitant]
     Active Substance: METHOTREXATE
     Indication: RHEUMATOID ARTHRITIS
  2. HUMIRA [Suspect]
     Active Substance: ADALIMUMAB
     Indication: RHEUMATOID ARTHRITIS
     Route: 058
     Dates: start: 20180426, end: 20180607
  3. LISINOPRIL. [Concomitant]
     Active Substance: LISINOPRIL
     Indication: BLOOD PRESSURE MEASUREMENT

REACTIONS (3)
  - Pyrexia [Unknown]
  - Hepatic adenoma [Not Recovered/Not Resolved]
  - Haemangioma of liver [Not Recovered/Not Resolved]

NARRATIVE: CASE EVENT DATE: 201805
